FAERS Safety Report 16306761 (Version 1)
Quarter: 2019Q2

REPORT INFORMATION
  Report Type: Spontaneous
  Country: US (occurrence: US)
  Receive Date: 20190513
  Receipt Date: 20190513
  Transmission Date: 20190711
  Serious: Yes (Other)
  Sender: FDA-Public Use
  Company Number: PHEH2019US020385

PATIENT
  Sex: Male

DRUGS (1)
  1. TASIGNA [Suspect]
     Active Substance: NILOTINIB
     Indication: CHRONIC MYELOID LEUKAEMIA
     Dosage: 2 MG, BID
     Route: 048

REACTIONS (24)
  - Neuropathy peripheral [Unknown]
  - Anaemia [Unknown]
  - Peripheral arterial occlusive disease [Unknown]
  - Hyperlipidaemia [Unknown]
  - Cellulitis [Unknown]
  - Blindness unilateral [Unknown]
  - Diabetic retinopathy [Unknown]
  - Vitamin D deficiency [Unknown]
  - Swelling [Unknown]
  - Testicular pain [Unknown]
  - Asthma [Unknown]
  - Glaucoma [Unknown]
  - Splenomegaly [Unknown]
  - Skin ulcer [Unknown]
  - Abscess [Unknown]
  - Osteomyelitis [Unknown]
  - Hypogonadism [Unknown]
  - Peripheral vascular disorder [Unknown]
  - Osteomyelitis acute [Unknown]
  - Hypoaesthesia [Unknown]
  - Dyspnoea [Unknown]
  - Erectile dysfunction [Unknown]
  - Pyrexia [Unknown]
  - Bronchitis [Unknown]
